FAERS Safety Report 11157853 (Version 1)
Quarter: 2015Q2

REPORT INFORMATION
  Report Type: Spontaneous
  Country: NL (occurrence: None)
  Receive Date: 20150601
  Receipt Date: 20150601
  Transmission Date: 20150821
  Serious: Yes (Other)
  Sender: FDA-Public Use
  Company Number: SP09504

PATIENT
  Age: 86 Year
  Sex: Female

DRUGS (11)
  1. FML LIQUIFILM [Concomitant]
  2. BISOPROLOL [Concomitant]
     Active Substance: BISOPROLOL
  3. XIFAXAN [Suspect]
     Active Substance: RIFAXIMIN
     Indication: HEPATIC FAILURE
     Dosage: 1100 MG (550 MG,2 IN 1 D),ORAL
     Route: 048
     Dates: start: 20141231, end: 20150429
  4. LACTULOSE. [Concomitant]
     Active Substance: LACTULOSE
  5. NOVOMIX 30 [Concomitant]
     Active Substance: INSULIN ASPART
  6. NOVORAPID [Concomitant]
     Active Substance: INSULIN ASPART
  7. PANTOPRAZOLE SODIUM SESQUIHYDRATE [Concomitant]
     Active Substance: PANTOPRAZOLE SODIUM
  8. SPIRONOLACTONE. [Concomitant]
     Active Substance: SPIRONOLACTONE
  9. CALCI CHEW D3 [Concomitant]
     Active Substance: CALCIUM CARBONATE\CHOLECALCIFEROL
  10. ACETYLSALICYLIC ACID [Concomitant]
     Active Substance: ASPIRIN
  11. FUROSEMIDE. [Concomitant]
     Active Substance: FUROSEMIDE

REACTIONS (5)
  - Thrombocytopenia [None]
  - Anaemia [None]
  - Off label use [None]
  - Condition aggravated [None]
  - Leukopenia [None]

NARRATIVE: CASE EVENT DATE: 20141231
